FAERS Safety Report 8966286 (Version 2)
Quarter: 2012Q4

REPORT INFORMATION
  Report Type: Report from Study
  Country: AT (occurrence: AT)
  Receive Date: 20121214
  Receipt Date: 20121226
  Transmission Date: 20130627
  Serious: Yes (Death, Hospitalization)
  Sender: FDA-Public Use
  Company Number: AT-BRISTOL-MYERS SQUIBB COMPANY-15343247

PATIENT
  Age: 47 Year
  Sex: Male
  Weight: 70 kg

DRUGS (3)
  1. CETUXIMAB [Suspect]
     Indication: HEAD AND NECK CANCER
     Dosage: No of infusions:11;Last infusion on 09-Aug-2011.
     Route: 042
     Dates: start: 20100531
  2. CISPLATIN FOR INJ [Suspect]
     Indication: HEAD AND NECK CANCER
     Dosage: No of infusions:4
11th infusion 9Aug10
     Route: 042
     Dates: start: 20100531, end: 20100802
  3. 5-FLUOROURACIL [Suspect]
     Indication: HEAD AND NECK CANCER
     Dosage: Continuous infusion from day 1 to day 4 of cycle.No of infusions:4
     Route: 042
     Dates: start: 20100531, end: 20100804

REACTIONS (1)
  - Blood creatinine increased [Fatal]
